FAERS Safety Report 25003275 (Version 1)
Quarter: 2025Q1

REPORT INFORMATION
  Report Type: Spontaneous
  Country: IE (occurrence: IE)
  Receive Date: 20250224
  Receipt Date: 20250224
  Transmission Date: 20250408
  Serious: Yes (Hospitalization, Disabling)
  Sender: ACCORD
  Company Number: IE-MLMSERVICE-20250206-PI398212-00057-1

PATIENT
  Age: 9 Decade
  Sex: Male

DRUGS (2)
  1. ATORVASTATIN [Suspect]
     Active Substance: ATORVASTATIN
     Indication: Cardiovascular event prophylaxis
  2. APIXABAN [Concomitant]
     Active Substance: APIXABAN

REACTIONS (3)
  - Necrotising myositis [Recovering/Resolving]
  - Cardiac failure [Unknown]
  - Liver injury [Recovering/Resolving]
